FAERS Safety Report 6439879-0 (Version None)
Quarter: 2009Q4

REPORT INFORMATION
  Report Type: 
  Country: None (occurrence: None)
  Receive Date: 20091112
  Receipt Date: 20091112
  Transmission Date: 20100525
  Serious: Yes (Life-Threatening, Hospitalization)
  Sender: FDA-Public Use
  Company Number: None

PATIENT
  Age: 37 Year
  Sex: Male
  Weight: 66 kg

DRUGS (2)
  1. AMYL NITRITE [Suspect]
     Indication: SUICIDE ATTEMPT
     Dosage: ORAL
     Route: 048
     Dates: start: 20091006
  2. ORTHENE ANT POISON [Suspect]
     Dosage: ORAL
     Route: 048
     Dates: start: 20091006

REACTIONS (4)
  - CYANOSIS [None]
  - METHAEMOGLOBINAEMIA [None]
  - SELF-MEDICATION [None]
  - UNRESPONSIVE TO STIMULI [None]
